FAERS Safety Report 9913363 (Version 2)
Quarter: 2014Q2

REPORT INFORMATION
  Report Type: Spontaneous
  Country: US (occurrence: None)
  Receive Date: 20140214
  Receipt Date: 20140617
  Transmission Date: 20141212
  Serious: Yes (Other)
  Sender: FDA-Public Use
  Company Number: 2014-US-001575

PATIENT
  Age: 44 Year
  Sex: Female

DRUGS (1)
  1. XYREM [Suspect]
     Indication: CHRONIC FATIGUE SYNDROME
     Route: 048
     Dates: start: 200708, end: 2007

REACTIONS (5)
  - Convulsion [None]
  - Social problem [None]
  - Sleep disorder [None]
  - Stress [None]
  - Off label use [None]
